FAERS Safety Report 5464908-0 (Version None)
Quarter: 2007Q3

REPORT INFORMATION
  Report Type: 
  Country: None (occurrence: None)
  Receive Date: 20070921
  Receipt Date: 20070911
  Transmission Date: 20080115
  Serious: Yes (Other)
  Sender: FDA-Public Use
  Company Number: PT-PFIZER INC-2007076802

PATIENT
  Sex: Female

DRUGS (5)
  1. LYRICA [Suspect]
     Indication: TRIGEMINAL NEURALGIA
     Route: 048
  2. VITAMINS [Concomitant]
     Route: 048
  3. CYMBALTA [Concomitant]
     Route: 048
  4. DIAZEPAM [Concomitant]
     Route: 048
  5. ANALGESICS [Concomitant]

REACTIONS (3)
  - ALOPECIA [None]
  - BALANCE DISORDER [None]
  - MENINGIOMA [None]
